FAERS Safety Report 6743211-2 (Version None)
Quarter: 2010Q2

REPORT INFORMATION
  Report Type: 
  Country: None (occurrence: None)
  Receive Date: 20100527
  Receipt Date: 20100518
  Transmission Date: 20101027
  Serious: Yes (Hospitalization)
  Sender: FDA-Public Use
  Company Number: FR-WYE-G06142910

PATIENT
  Sex: Male

DRUGS (8)
  1. EFFEXOR XR [Suspect]
     Indication: DEPRESSION
     Dosage: 75 MG TOTAL DAILY
     Route: 048
  2. ARICEPT [Suspect]
     Indication: DEMENTIA ALZHEIMER'S TYPE
     Dosage: 10 MG STRENGTH; DOSE UNKNOWN
     Route: 048
  3. POTASSIUM [Concomitant]
     Indication: HYPOKALAEMIA
     Dosage: 15 ML; FREQUENCY UNSPECIFIED
     Route: 048
  4. SERESTA [Concomitant]
     Indication: ANXIETY
     Route: 048
  5. DEBRIDAT [Concomitant]
     Dosage: 300 MG TOTAL DAILY
     Route: 048
  6. RISPERDAL [Concomitant]
     Indication: HALLUCINATION
     Dosage: 1.5 MG TOTAL DAILY
     Route: 048
  7. LERCAN [Suspect]
     Indication: HYPERTENSION
     Route: 048
  8. KARDEGIC [Concomitant]
     Indication: CARDIOVASCULAR EVENT PROPHYLAXIS
     Dosage: 75 MG STRENGTH; DOSE UNKNOWN
     Route: 048

REACTIONS (6)
  - BLOOD GLUCOSE INCREASED [None]
  - BODY TEMPERATURE DECREASED [None]
  - DIARRHOEA [None]
  - FAECES DISCOLOURED [None]
  - HAEMATEMESIS [None]
  - MALAISE [None]
